FAERS Safety Report 9669690 (Version 2)
Quarter: 2013Q4

REPORT INFORMATION
  Report Type: Spontaneous
  Country: US (occurrence: US)
  Receive Date: 20131105
  Receipt Date: 20131216
  Transmission Date: 20140711
  Serious: Yes (Other)
  Sender: FDA-Public Use
  Company Number: US-BRISTOL-MYERS SQUIBB COMPANY-19655521

PATIENT
  Sex: Male

DRUGS (1)
  1. BYETTA [Suspect]
     Indication: TYPE 2 DIABETES MELLITUS
     Dosage: LAST DOSE ON JAN09
     Dates: start: 200505, end: 200901

REACTIONS (1)
  - Pancreatic carcinoma [Unknown]
